FAERS Safety Report 6117957-3 (Version None)
Quarter: 2009Q1

REPORT INFORMATION
  Report Type: 
  Country: None (occurrence: None)
  Receive Date: 20090314
  Receipt Date: 20090202
  Transmission Date: 20090719
  Serious: No
  Sender: FDA-Public Use
  Company Number: US-ABBOTT-09P-163-0501543-00

PATIENT
  Sex: Female
  Weight: 81.72 kg

DRUGS (15)
  1. HUMIRA [Suspect]
     Indication: RHEUMATOID ARTHRITIS
     Route: 058
     Dates: start: 20061101, end: 20081001
  2. HUMIRA [Suspect]
     Route: 058
     Dates: start: 20081001, end: 20081201
  3. HUMIRA [Suspect]
     Route: 058
     Dates: start: 20081222
  4. CRESTOR [Concomitant]
     Indication: BLOOD CHOLESTEROL INCREASED
  5. ASTELIN [Concomitant]
     Indication: HYPERSENSITIVITY
  6. SYNTHROID [Concomitant]
     Indication: HYPOTHYROIDISM
  7. SPIRIVA [Concomitant]
     Indication: EMPHYSEMA
     Route: 055
  8. XOPENEX [Concomitant]
     Indication: EMPHYSEMA
     Dosage: UP TO 4 TIMES DAILY PRN
  9. DARVOCET [Concomitant]
     Indication: PAIN
     Dosage: UP TO 4 TIMES DAILY PRN
  10. XANAX [Concomitant]
     Indication: ANXIOLYTIC THERAPY
  11. ZANTAC [Concomitant]
     Indication: HIATUS HERNIA
  12. ZANTAC [Concomitant]
     Indication: GASTROOESOPHAGEAL REFLUX DISEASE
  13. IMODIUM [Concomitant]
     Indication: IRRITABLE BOWEL SYNDROME
  14. MULTI-VITAMIN [Concomitant]
     Indication: DRUG USE FOR UNKNOWN INDICATION
  15. VITAMIN D [Concomitant]
     Indication: VITAMIN D DEFICIENCY

REACTIONS (3)
  - INCORRECT DOSE ADMINISTERED [None]
  - INJECTION SITE PAIN [None]
  - RHEUMATOID ARTHRITIS [None]
